FAERS Safety Report 20658228 (Version 17)
Quarter: 2022Q4

REPORT INFORMATION
  Report Type: Report from Study
  Country: GB (occurrence: GB)
  Receive Date: 20220331
  Receipt Date: 20221204
  Transmission Date: 20230113
  Serious: Yes (Death, Hospitalization, Other)
  Sender: FDA-Public Use
  Company Number: GB-CELGENE-GBR-2016031205

PATIENT
  Age: 73 Year
  Sex: Female
  Weight: 72 kg

DRUGS (60)
  1. POMALIDOMIDE [Suspect]
     Active Substance: POMALIDOMIDE
     Indication: Plasma cell myeloma
     Dosage: 84 MILLIGRAM, 28 DAYS (3 MILLIGRAM
     Dates: start: 20160223, end: 20160321
  2. POMALIDOMIDE [Suspect]
     Active Substance: POMALIDOMIDE
     Indication: Prophylaxis
     Route: 048
     Dates: start: 20160223, end: 20160315
  3. POMALIDOMIDE [Suspect]
     Active Substance: POMALIDOMIDE
     Dosage: 84 MILLIGRAM, 984 MILLIGRAM 28 DAYS (3 MILLIGRAM)
     Route: 048
     Dates: start: 20160223, end: 20160321
  4. POMALIDOMIDE [Suspect]
     Active Substance: POMALIDOMIDE
     Dosage: 84 MILLIGRAM, 28 DAYS (3 MILLIGRAM)
     Route: 048
     Dates: start: 20160223, end: 20160228
  5. POMALIDOMIDE [Suspect]
     Active Substance: POMALIDOMIDE
     Dosage: 84 MILLIGRAM, 984 MILLIGRAM 28 DAYS (3 MILLIGRAM)
     Route: 048
     Dates: start: 20160223, end: 20160228
  6. POMALIDOMIDE [Suspect]
     Active Substance: POMALIDOMIDE
     Dosage: 84 MILLIGRAM, 28 DAYS (3 MILLIGRAM)
     Route: 048
     Dates: start: 20160223, end: 20160315
  7. POMALIDOMIDE [Suspect]
     Active Substance: POMALIDOMIDE
     Dosage: 84 MILLIGRAM, EVERY 28 DAYS
     Route: 048
     Dates: start: 20160223, end: 20160328
  8. POMALIDOMIDE [Suspect]
     Active Substance: POMALIDOMIDE
     Dosage: 84 MILLIGRAM, EVERY 28 DAYS
     Route: 048
     Dates: start: 20160223, end: 20160228
  9. POMALIDOMIDE [Suspect]
     Active Substance: POMALIDOMIDE
     Dosage: 84 MILLIGRAM, EVERY 28 DAYS
     Route: 048
     Dates: start: 20160223, end: 20160315
  10. POMALIDOMIDE [Suspect]
     Active Substance: POMALIDOMIDE
     Dosage: 84 MILLIGRAM, EVERY 28 DAYS
     Route: 048
     Dates: start: 20160223, end: 20160321
  11. POMALIDOMIDE [Suspect]
     Active Substance: POMALIDOMIDE
     Dosage: 84 MILLIGRAM, EVERY 28 DAYS
     Route: 048
     Dates: start: 20160228
  12. POMALIDOMIDE [Suspect]
     Active Substance: POMALIDOMIDE
     Dosage: 3 MILLIGRAM, ALSO RECEIVED ON 28-FEB-2016; ALSO RECEIVED 4 MG
     Route: 065
     Dates: start: 20160223, end: 20160321
  13. POMALIDOMIDE [Suspect]
     Active Substance: POMALIDOMIDE
     Dosage: 3 MILLIGRAM, ALSO RECEIVED ON 28-FEB-2016; ALSO RECEIVED 4 MG
     Route: 048
     Dates: start: 20160223, end: 20160228
  14. POMALIDOMIDE [Suspect]
     Active Substance: POMALIDOMIDE
     Dosage: 63 MILLIGRAM
     Route: 065
     Dates: start: 20160223, end: 20160315
  15. POMALIDOMIDE [Suspect]
     Active Substance: POMALIDOMIDE
     Dosage: 4 MILLIGRAM, 28 DAYS (3 MILLIGRAM)
     Route: 048
     Dates: start: 20160223, end: 20160228
  16. POMALIDOMIDE [Suspect]
     Active Substance: POMALIDOMIDE
     Dosage: 4 MILLIGRAM
     Route: 048
     Dates: start: 20160223, end: 20160321
  17. POMALIDOMIDE [Suspect]
     Active Substance: POMALIDOMIDE
     Dosage: 84 MILLIGRAM, 1 EVERY 28 DAYS (84 MG, 3 MILLIGRAM, ALSO RECEIVED ON 28-FEB-2016;)
     Route: 048
     Dates: start: 20160223, end: 20160321
  18. POMALIDOMIDE [Suspect]
     Active Substance: POMALIDOMIDE
     Dosage: 3 MILLIGRAM
     Route: 065
     Dates: start: 20160223, end: 20160321
  19. POMALIDOMIDE [Suspect]
     Active Substance: POMALIDOMIDE
     Route: 048
     Dates: start: 20160315
  20. POMALIDOMIDE [Suspect]
     Active Substance: POMALIDOMIDE
     Dosage: RECEIVED TILL 2-MAR-2016 AND ALSO RECEIVED 15-MAR-2016 (8 DAYS), 5.7143 MILLIGRAM
     Route: 048
     Dates: start: 20160315
  21. DEXAMETHASONE [Suspect]
     Active Substance: DEXAMETHASONE
     Indication: Plasma cell myeloma
     Dosage: 40 MILLIGRAM, QW
     Dates: start: 20160223, end: 20160315
  22. DEXAMETHASONE [Suspect]
     Active Substance: DEXAMETHASONE
     Dosage: RECEIVED TILL 2-MAR-2016 AND ALSO RECEIVED 15-MAR-2016 (8 DAYS), 5.7143 MILLIGRAM
     Route: 048
     Dates: start: 20160315, end: 20160322
  23. DEXAMETHASONE [Suspect]
     Active Substance: DEXAMETHASONE
     Dosage: 40 MILLIGRAM, EVERY WEEK, RECEIVED TILL 2-MAR-2016 AND ALSO RECEIVED 15-MAR-2016 (8 DAYS), 5.7143 MI
     Route: 048
     Dates: start: 20160223, end: 20160302
  24. DEXAMETHASONE [Suspect]
     Active Substance: DEXAMETHASONE
     Route: 048
     Dates: start: 20160315
  25. DEXAMETHASONE [Suspect]
     Active Substance: DEXAMETHASONE
     Dosage: SOLUBLE TABLET
     Route: 048
     Dates: start: 20160315, end: 20160322
  26. DEXAMETHASONE [Suspect]
     Active Substance: DEXAMETHASONE
     Dosage: SOLUBLE TABLET?40 MILLIGRAM (5.7143 MG)
     Route: 048
     Dates: start: 20160223, end: 20160302
  27. DEXAMETHASONE [Suspect]
     Active Substance: DEXAMETHASONE
     Dosage: SOLUBLE TABLET
     Route: 048
  28. DEXAMETHASONE [Suspect]
     Active Substance: DEXAMETHASONE
     Dosage: SOLUBLE TABLET?40 MILLIGRAM 42 D (5.7143 MILLIGRAM
     Route: 048
     Dates: start: 20160223, end: 20160315
  29. DEXAMETHASONE [Suspect]
     Active Substance: DEXAMETHASONE
     Dosage: SOLUBLE TABLET
     Route: 048
     Dates: start: 20160223
  30. DEXAMETHASONE [Suspect]
     Active Substance: DEXAMETHASONE
     Dosage: SOLUBLE TABLET?40 MILLIGRAM, QW
     Route: 048
     Dates: start: 20160223, end: 20160302
  31. DEXAMETHASONE [Suspect]
     Active Substance: DEXAMETHASONE
     Dosage: SOLUBLE TABLET?40 MILLIGRAM, QW (1 DOSE WEEKLY)
     Route: 048
     Dates: start: 20160223
  32. DEXAMETHASONE [Suspect]
     Active Substance: DEXAMETHASONE
     Dosage: SOLUBLE TABLET?40 MILLIGRAM, UNK
     Route: 048
     Dates: start: 20160315
  33. DEXAMETHASONE [Suspect]
     Active Substance: DEXAMETHASONE
     Dosage: SOLUBLE TABLET?5.71 MILLIGRAM, QW
     Route: 048
     Dates: start: 20160223, end: 20160302
  34. DEXAMETHASONE [Suspect]
     Active Substance: DEXAMETHASONE
     Dosage: SOLUBLE TABLETS?5.714 MILLIGRAM
     Route: 065
     Dates: start: 20160315
  35. DEXAMETHASONE [Suspect]
     Active Substance: DEXAMETHASONE
     Dosage: SOLUBLE TABLETS?40 MG QD
     Route: 065
     Dates: start: 20160315
  36. LENALIDOMIDE [Suspect]
     Active Substance: LENALIDOMIDE
     Indication: Prophylaxis
     Dosage: 200 MG, QD
     Route: 048
     Dates: start: 20160223, end: 20160228
  37. LENALIDOMIDE [Suspect]
     Active Substance: LENALIDOMIDE
     Dosage: 1400 MILLIGRAM
     Route: 065
  38. ALLOPURINOL [Suspect]
     Active Substance: ALLOPURINOL
     Indication: Plasma cell myeloma
     Dosage: 40 MILLIGRAM, QW
     Route: 048
     Dates: start: 20160223
  39. ALLOPURINOL [Suspect]
     Active Substance: ALLOPURINOL
     Indication: Plasma cell myeloma
     Dosage: 3 MILLIGRAM, OD
     Route: 048
     Dates: start: 20160223, end: 20160321
  40. ALLOPURINOL [Suspect]
     Active Substance: ALLOPURINOL
     Indication: Prophylaxis
     Dosage: 3 MILLIGRAM
     Route: 048
     Dates: start: 20160223, end: 20160321
  41. ALLOPURINOL [Suspect]
     Active Substance: ALLOPURINOL
     Dosage: 3 MILLIGRAM
     Route: 048
     Dates: start: 20160223, end: 20160228
  42. ALLOPURINOL [Suspect]
     Active Substance: ALLOPURINOL
     Dosage: 3 MILLIGRAM, OD
     Route: 048
     Dates: start: 20160223, end: 20160228
  43. ALLOPURINOL [Suspect]
     Active Substance: ALLOPURINOL
     Dosage: 40 MILLIGRAM
     Route: 048
     Dates: start: 20160315
  44. ALLOPURINOL [Suspect]
     Active Substance: ALLOPURINOL
     Dosage: 200 MILLIGRAM, OD
     Route: 048
     Dates: start: 20160223, end: 20160321
  45. ALLOPURINOL [Suspect]
     Active Substance: ALLOPURINOL
     Dosage: 200 MILLIGRAM, QD
     Route: 048
     Dates: start: 20160223, end: 20160228
  46. ALLOPURINOL [Suspect]
     Active Substance: ALLOPURINOL
     Dosage: 40 MILLIGRAM, OD
     Route: 048
     Dates: start: 20160315
  47. ALLOPURINOL [Suspect]
     Active Substance: ALLOPURINOL
     Dosage: 40 MILLIGRAM, OD
     Route: 048
     Dates: start: 20160223, end: 20160228
  48. ALLOPURINOL [Suspect]
     Active Substance: ALLOPURINOL
     Dosage: 40 MILLIGRAM
     Route: 048
     Dates: start: 20160223, end: 20160228
  49. ALLOPURINOL [Suspect]
     Active Substance: ALLOPURINOL
     Dosage: 40 MILLIGRAM, QW
     Route: 048
     Dates: start: 20160315
  50. ALLOPURINOL [Suspect]
     Active Substance: ALLOPURINOL
     Dosage: 3 MILLIGRAM, QD
     Route: 048
     Dates: start: 20160223, end: 20160321
  51. ALLOPURINOL [Suspect]
     Active Substance: ALLOPURINOL
     Dosage: 200 MILLIGRAM, QD
     Route: 048
  52. ALLOPURINOL [Suspect]
     Active Substance: ALLOPURINOL
     Dosage: 200 MILLIGRAM, QD
     Route: 048
  53. ALLOPURINOL [Suspect]
     Active Substance: ALLOPURINOL
     Dosage: 200 MG, QD
     Route: 048
  54. ALLOPURINOL [Suspect]
     Active Substance: ALLOPURINOL
     Dosage: 40 MILLIGRAM, QW
     Route: 048
     Dates: start: 20160223
  55. ALLOPURINOL [Suspect]
     Active Substance: ALLOPURINOL
     Dosage: 3 MILLIGRAM
     Route: 048
     Dates: start: 20160223, end: 20160228
  56. ALLOPURINOL [Suspect]
     Active Substance: ALLOPURINOL
     Dosage: 3 MILLIGRAM
     Route: 048
     Dates: start: 20160223, end: 20160321
  57. OMEPRAZOLE [Concomitant]
     Active Substance: OMEPRAZOLE
     Indication: Product used for unknown indication
     Dosage: 20 MILLIGRAM, OD
     Route: 048
     Dates: start: 20160223
  58. DALTEPARIN [Concomitant]
     Active Substance: DALTEPARIN
     Indication: Anticoagulant therapy
     Dosage: 5000 INTERNATIONAL UNIT
     Route: 065
     Dates: start: 20160223, end: 20160302
  59. DALTEPARIN [Concomitant]
     Active Substance: DALTEPARIN
  60. DALTEPARIN [Concomitant]
     Active Substance: DALTEPARIN

REACTIONS (9)
  - Rash [Fatal]
  - Acute kidney injury [Fatal]
  - Condition aggravated [Fatal]
  - Thrombocytopenia [Fatal]
  - Plasma cell myeloma [Fatal]
  - Bone marrow failure [Fatal]
  - Pneumonia [Fatal]
  - Neutropenia [Fatal]
  - Intentional product misuse [Unknown]

NARRATIVE: CASE EVENT DATE: 20160301
